FAERS Safety Report 9140966 (Version 2)
Quarter: 2013Q1

REPORT INFORMATION
  Report Type: Report from Study
  Country: DE (occurrence: DE)
  Receive Date: 20130305
  Receipt Date: 20130311
  Transmission Date: 20140127
  Serious: Yes (Hospitalization, Other)
  Sender: FDA-Public Use
  Company Number: PHHO2013DE003151

PATIENT
  Sex: 0

DRUGS (13)
  1. CLOPIDOGREL [Suspect]
     Indication: ANGIOPATHY
     Dosage: CODE NOT BROKEN
     Route: 048
     Dates: start: 20120621
  2. BLINDED NO TREATMENT RECEIVED [Suspect]
     Indication: ANGIOPATHY
     Dosage: CODE NOT BROKEN
     Route: 048
     Dates: start: 20120621
  3. BLINDED PLACEBO [Suspect]
     Indication: ANGIOPATHY
     Dosage: CODE NOT BROKEN
     Route: 048
     Dates: start: 20120621
  4. EVEROLIMUS [Suspect]
     Indication: PROPHYLAXIS AGAINST TRANSPLANT REJECTION
     Dosage: 0.75-0-0.5MG
     Route: 048
     Dates: end: 20130205
  5. PREDNISOLONE SANDOZ [Suspect]
     Indication: PROPHYLAXIS AGAINST TRANSPLANT REJECTION
     Dosage: 5 MG, UNK
     Route: 048
  6. METAMIZOLE [Suspect]
     Dosage: 500 MG, Q6H
     Route: 048
     Dates: start: 20130206
  7. CYCLOSPORIN A [Concomitant]
     Indication: PROPHYLAXIS AGAINST TRANSPLANT REJECTION
     Dosage: 85-0-75MG
     Route: 048
  8. ALLOPURINOL [Concomitant]
     Indication: HYPERURICAEMIA
     Dosage: 200 MG, UNK
     Route: 048
  9. RANITIDINE [Concomitant]
     Dosage: 200 MG, UNK
     Route: 048
     Dates: end: 20130205
  10. FLUVASTATIN [Concomitant]
     Indication: HYPERCHOLESTEROLAEMIA
  11. RAMIPRIL [Concomitant]
     Indication: HYPERTENSION
     Dosage: 2.5 MG, UNK
     Route: 048
     Dates: end: 20130205
  12. TORASEMIDE [Concomitant]
     Dosage: 10 MG, UNK
     Route: 048
     Dates: end: 20130205
  13. INSULIN [Concomitant]
     Indication: TYPE 2 DIABETES MELLITUS
     Dosage: UNK
     Dates: end: 20130205

REACTIONS (2)
  - Gastritis erosive [Recovered/Resolved]
  - Hiatus hernia [None]
